FAERS Safety Report 7945045-X (Version None)
Quarter: 2011Q4

REPORT INFORMATION
  Report Type: 
  Country: None (occurrence: None)
  Receive Date: 20111129
  Receipt Date: 20111118
  Transmission Date: 20120403
  Serious: Yes (Other)
  Sender: FDA-Public Use
  Company Number: FR-UCBSA-046120

PATIENT
  Sex: Male

DRUGS (2)
  1. KEPPRA [Suspect]
     Route: 048
  2. TEMODAL [Concomitant]
     Route: 048

REACTIONS (1)
  - THROMBOCYTOPENIA [None]
